FAERS Safety Report 18371349 (Version 1)
Quarter: 2020Q4

REPORT INFORMATION
  Report Type: Spontaneous
  Country: US (occurrence: US)
  Receive Date: 20201012
  Receipt Date: 20201012
  Transmission Date: 20210114
  Serious: Yes (Other)
  Sender: FDA-Public Use
  Company Number: US-AMERICAN REGENT INC-2020002084

PATIENT
  Age: 47 Year
  Sex: Male
  Weight: 90.2 kg

DRUGS (11)
  1. ASCORBIC ACID INJECTION, USP (0206-50K) [Concomitant]
     Active Substance: ASCORBIC ACID
     Indication: VASOPLEGIA SYNDROME
     Dosage: 1.5 GRAM, EVERY 6 HOURS
     Route: 042
  2. MILRINONE [Concomitant]
     Active Substance: MILRINONE
     Dosage: 0.125 UG/KG/MIN
     Route: 042
  3. NOREPINEPHRINE. [Suspect]
     Active Substance: NOREPINEPHRINE
     Dosage: ESCALATING INFUSION RATES
     Route: 042
  4. MILRINONE [Concomitant]
     Active Substance: MILRINONE
     Indication: SUPPORTIVE CARE
     Dosage: 0.25 UG/KG/MIN
     Route: 042
  5. NITRIC OXIDE. [Concomitant]
     Active Substance: NITRIC OXIDE
     Indication: SUPPORTIVE CARE
     Dosage: 20 PPM
  6. EPINEPHRINE INJECTION, USP (0517-1071-01) [Suspect]
     Active Substance: EPINEPHRINE
     Indication: VASOPLEGIA SYNDROME
     Dosage: 0.03 UG/KG/MIN
     Route: 042
  7. VASOPRESSIN INJECTION, USP [Suspect]
     Active Substance: VASOPRESSIN
     Indication: VASOPLEGIA SYNDROME
     Dosage: 0.04 U/MIN
     Route: 042
  8. NOREPINEPHRINE. [Suspect]
     Active Substance: NOREPINEPHRINE
     Indication: VASOPLEGIA SYNDROME
     Dosage: 0.04 UG/KG/MIN
     Route: 042
  9. NOREPINEPHRINE. [Suspect]
     Active Substance: NOREPINEPHRINE
     Dosage: 0.18 UG/KG/MIN
     Route: 042
  10. ISOPROTERENOL                      /00006301/ [Concomitant]
     Active Substance: ISOPROTERENOL
     Indication: SUPPORTIVE CARE
     Dosage: 20 NG/KG/MIN
     Route: 042
  11. NOREPINEPHRINE. [Suspect]
     Active Substance: NOREPINEPHRINE
     Dosage: 0.05 UG/KG/MIN
     Route: 042

REACTIONS (4)
  - Vasoplegia syndrome [Recovered/Resolved]
  - Drug ineffective [Recovered/Resolved]
  - Drug ineffective for unapproved indication [Recovered/Resolved]
  - Product use in unapproved indication [Unknown]
